FAERS Safety Report 11488236 (Version 1)
Quarter: 2015Q3

REPORT INFORMATION
  Report Type: Spontaneous
  Country: US (occurrence: US)
  Receive Date: 20150910
  Receipt Date: 20150910
  Transmission Date: 20151125
  Serious: No
  Sender: FDA-Public Use
  Company Number: US-ROCHE-1442079

PATIENT
  Sex: Male

DRUGS (2)
  1. RIBAVIRIN TEVA [Suspect]
     Active Substance: RIBAVIRIN
     Indication: CHRONIC HEPATITIS C
     Dosage: DIVIDED DOSES 600/400
     Route: 065
     Dates: start: 20140628
  2. PEGASYS [Suspect]
     Active Substance: PEGINTERFERON ALFA-2A
     Indication: CHRONIC HEPATITIS C
     Route: 058
     Dates: start: 20140628, end: 20140724

REACTIONS (25)
  - Dyspepsia [Unknown]
  - Fatigue [Unknown]
  - Rhinorrhoea [Unknown]
  - Pain [Unknown]
  - Mood swings [Unknown]
  - Weight decreased [Unknown]
  - Spinal pain [Unknown]
  - Alopecia [Unknown]
  - Headache [Unknown]
  - Body temperature decreased [Unknown]
  - Hyperhidrosis [Unknown]
  - Rash generalised [Unknown]
  - Influenza like illness [Unknown]
  - Asthenia [Unknown]
  - Decreased appetite [Unknown]
  - Arthralgia [Unknown]
  - Bronchitis [Unknown]
  - Skin reaction [Unknown]
  - Scab [Unknown]
  - Skin discolouration [Unknown]
  - Insomnia [Unknown]
  - Vomiting [Unknown]
  - Blood glucose decreased [Unknown]
  - Chills [Unknown]
  - Body temperature fluctuation [Unknown]
